FAERS Safety Report 7920845-0 (Version None)
Quarter: 2011Q4

REPORT INFORMATION
  Report Type: 
  Country: None (occurrence: None)
  Receive Date: 20111117
  Receipt Date: 20110811
  Transmission Date: 20120403
  Serious: No
  Sender: FDA-Public Use
  Company Number: US-GLAXOSMITHKLINE-A0940521A

PATIENT
  Sex: Female

DRUGS (4)
  1. OMEPRAZOLE [Concomitant]
  2. SENOKOT [Concomitant]
  3. RANITIDINE [Concomitant]
  4. VOTRIENT [Suspect]
     Indication: NEOPLASM MALIGNANT
     Dosage: 200MG PER DAY
     Route: 048
     Dates: start: 20110722

REACTIONS (2)
  - MALABSORPTION [None]
  - MEDICATION RESIDUE [None]
